FAERS Safety Report 16942293 (Version 2)
Quarter: 2019Q4

REPORT INFORMATION
  Report Type: Report from Study
  Country: US (occurrence: US)
  Receive Date: 20191021
  Receipt Date: 20191023
  Transmission Date: 20200122
  Serious: No
  Sender: FDA-Public Use
  Company Number: US-SA-2019SA288145

PATIENT
  Age: 78 Year
  Sex: Female

DRUGS (1)
  1. INSULIN GLULISINE [Suspect]
     Active Substance: INSULIN GLULISINE

REACTIONS (4)
  - Herpes zoster [Recovered/Resolved]
  - Blood glucose increased [Not Recovered/Not Resolved]
  - Depressed mood [Unknown]
  - Upper respiratory tract infection [Not Recovered/Not Resolved]
